FAERS Safety Report 5662122-7 (Version None)
Quarter: 2008Q1

REPORT INFORMATION
  Report Type: 
  Country: None (occurrence: None)
  Receive Date: 20080312
  Receipt Date: 20080305
  Transmission Date: 20080703
  Serious: Yes (Death)
  Sender: FDA-Public Use
  Company Number: US-BAXTER-2008BH001773

PATIENT
  Sex: Male

DRUGS (1)
  1. HEPARIN SODIUM [Suspect]
     Indication: CARDIAC OPERATION
     Dosage: DOSE UNIT:UNKNOWN
     Route: 065

REACTIONS (3)
  - HEPARIN-INDUCED THROMBOCYTOPENIA [None]
  - PULMONARY EMBOLISM [None]
  - RESPIRATORY FAILURE [None]
